FAERS Safety Report 7479428-1 (Version None)
Quarter: 2011Q2

REPORT INFORMATION
  Report Type: 
  Country: None (occurrence: None)
  Receive Date: 20110513
  Receipt Date: 20110505
  Transmission Date: 20111010
  Serious: Yes (Hospitalization, Other)
  Sender: FDA-Public Use
  Company Number: BE-GENZYME-CLOF-1001419

PATIENT
  Sex: Female
  Weight: 52 kg

DRUGS (3)
  1. CYTARABINE [Suspect]
     Indication: ACUTE MYELOID LEUKAEMIA
     Dosage: 2100 MG, QD
     Route: 042
     Dates: start: 20110118, end: 20110124
  2. EVOLTRA [Suspect]
     Indication: ACUTE MYELOID LEUKAEMIA
     Dosage: 75 MG, QDX5
     Route: 042
     Dates: start: 20110118, end: 20110122
  3. IDARUBICIN HCL [Suspect]
     Indication: ACUTE MYELOID LEUKAEMIA
     Dosage: 54 MG, QDX3
     Route: 042
     Dates: start: 20110118, end: 20110120

REACTIONS (3)
  - PULMONARY FIBROSIS [None]
  - PNEUMONIA [None]
  - SEPTIC SHOCK [None]
